FAERS Safety Report 15896892 (Version 1)
Quarter: 2019Q1

REPORT INFORMATION
  Report Type: Spontaneous
  Country: US (occurrence: US)
  Receive Date: 20190131
  Receipt Date: 20190131
  Transmission Date: 20190417
  Serious: Yes (Hospitalization)
  Sender: FDA-Public Use
  Company Number: US-MYLANLABS-2019M1008134

PATIENT
  Age: 24 Year
  Sex: Male

DRUGS (6)
  1. POLYMYXIN B. [Suspect]
     Active Substance: POLYMYXIN B
     Indication: KLEBSIELLA INFECTION
     Dosage: ADMINISTERED ONCE
     Route: 042
  2. GENTAMICIN. [Suspect]
     Active Substance: GENTAMICIN
     Indication: KLEBSIELLA INFECTION
     Dosage: 5 MG/KG/DOSE EVERY 24 HOURS
     Route: 042
  3. METRONIDAZOLE. [Concomitant]
     Active Substance: METRONIDAZOLE
     Indication: KLEBSIELLA INFECTION
     Dosage: STARTED ON DAY 55 AFTER LIVER TRANSPLANT
     Route: 042
  4. TIGECYCLINE. [Suspect]
     Active Substance: TIGECYCLINE
     Indication: KLEBSIELLA INFECTION
     Dosage: ADMINISTERED ONCE; STARTED ON DAY 63 AFTER LIVER TRANSPLANT
     Route: 042
  5. POLYMYXIN B. [Suspect]
     Active Substance: POLYMYXIN B
     Dosage: 1.5 MG/KG/DOSE EVERY 12 HOURS
     Route: 042
  6. TIGECYCLINE. [Suspect]
     Active Substance: TIGECYCLINE
     Route: 042

REACTIONS (3)
  - Renal failure [Recovered/Resolved]
  - Treatment failure [Unknown]
  - Nephropathy toxic [Recovered/Resolved]
